FAERS Safety Report 6259703-9 (Version None)
Quarter: 2009Q3

REPORT INFORMATION
  Report Type: 
  Country: None (occurrence: None)
  Receive Date: 20090708
  Receipt Date: 20090626
  Transmission Date: 20100115
  Serious: Yes (Other)
  Sender: FDA-Public Use
  Company Number: US-JNJFOC-20090602928

PATIENT
  Sex: Female

DRUGS (2)
  1. INVEGA [Suspect]
     Indication: SCHIZOPHRENIA
     Route: 048
  2. GEODON [Interacting]
     Indication: SCHIZOPHRENIA

REACTIONS (6)
  - BALANCE DISORDER [None]
  - CATATONIA [None]
  - CONVULSION [None]
  - DRUG INTERACTION [None]
  - HYPOTONIA [None]
  - MUTISM [None]
